FAERS Safety Report 5863507-6 (Version None)
Quarter: 2008Q3

REPORT INFORMATION
  Report Type: 
  Country: None (occurrence: None)
  Receive Date: 20080828
  Receipt Date: 20080818
  Transmission Date: 20090109
  Serious: Yes (Hospitalization)
  Sender: FDA-Public Use
  Company Number: NL-BRISTOL-MYERS SQUIBB COMPANY-14313373

PATIENT
  Age: 44 Year
  Sex: Female

DRUGS (6)
  1. CETUXIMAB [Suspect]
     Indication: NON-SMALL CELL LUNG CANCER
     Dosage: 29JUL08,680MG,1 IN 1WK; 05-AUG-2008-CONT,840MG,1 IN 1,IV.
     Route: 042
     Dates: start: 20080729
  2. CISPLATIN [Suspect]
     Indication: NON-SMALL CELL LUNG CANCER
     Route: 042
     Dates: start: 20080805
  3. RADIOTHERAPY [Suspect]
     Indication: NON-SMALL CELL LUNG CANCER
     Dates: start: 20080805
  4. MINOCYCLINE HCL [Concomitant]
     Dates: start: 20080811, end: 20080814
  5. CLEMASTINE FUMARATE [Concomitant]
     Dates: start: 20080805
  6. GRANISETRON HCL [Concomitant]
     Dates: start: 20080805

REACTIONS (2)
  - HAEMOPTYSIS [None]
  - NAUSEA [None]
